FAERS Safety Report 17333986 (Version 1)
Quarter: 2020Q1

REPORT INFORMATION
  Report Type: Spontaneous
  Country: MX (occurrence: MX)
  Receive Date: 20200128
  Receipt Date: 20200128
  Transmission Date: 20200409
  Serious: Yes (Other)
  Sender: FDA-Public Use
  Company Number: MX-PFIZER INC-2020039384

PATIENT
  Age: 84 Year
  Sex: Male
  Weight: 89 kg

DRUGS (4)
  1. ALDACTONE [Suspect]
     Active Substance: SPIRONOLACTONE
     Dosage: UNK
  2. LASIX [Concomitant]
     Active Substance: FUROSEMIDE
     Dosage: UNK
  3. ELICUIS [Concomitant]
     Active Substance: APIXABAN
     Indication: TACHYCARDIA
     Dosage: 5 MG, 1X/DAY
  4. ELICUIS [Concomitant]
     Active Substance: APIXABAN
     Indication: BRADYCARDIA

REACTIONS (1)
  - Respiratory tract infection [Unknown]
